FAERS Safety Report 5850540-3 (Version None)
Quarter: 2008Q3

REPORT INFORMATION
  Report Type: 
  Country: None (occurrence: None)
  Receive Date: 20080819
  Receipt Date: 20080819
  Transmission Date: 20090109
  Serious: Yes (Other)
  Sender: FDA-Public Use
  Company Number: None

PATIENT
  Age: 73 Year
  Sex: Male
  Weight: 81.6475 kg

DRUGS (1)
  1. DIGOXIN TAB [Suspect]
     Indication: HEART RATE IRREGULAR

REACTIONS (1)
  - BLOOD TEST ABNORMAL [None]
